FAERS Safety Report 12643853 (Version 3)
Quarter: 2016Q4

REPORT INFORMATION
  Report Type: Spontaneous
  Country: JP (occurrence: JP)
  Receive Date: 20160811
  Receipt Date: 20161005
  Transmission Date: 20170207
  Serious: Yes (Hospitalization)
  Sender: FDA-Public Use
  Company Number: JP-EISAI MEDICAL RESEARCH-EC-2016-019239

PATIENT
  Sex: Male

DRUGS (3)
  1. HALAVEN [Suspect]
     Active Substance: ERIBULIN MESYLATE
     Dosage: UNKNOWN
     Route: 041
     Dates: start: 2016
  2. HALAVEN [Suspect]
     Active Substance: ERIBULIN MESYLATE
     Indication: EPITHELIOID SARCOMA
     Route: 041
     Dates: start: 20160720, end: 20160728
  3. DECADRON [Concomitant]
     Active Substance: DEXAMETHASONE
     Indication: DYSPNOEA
     Route: 048
     Dates: start: 20160623, end: 20160907

REACTIONS (2)
  - Neutropenia [Unknown]
  - Pneumonia [Recovering/Resolving]

NARRATIVE: CASE EVENT DATE: 2016
